FAERS Safety Report 23058717 (Version 3)
Quarter: 2023Q4

REPORT INFORMATION
  Report Type: Spontaneous
  Country: ES (occurrence: ES)
  Receive Date: 20231012
  Receipt Date: 20231023
  Transmission Date: 20240110
  Serious: Yes (Other)
  Sender: FDA-Public Use
  Company Number: ES-TEVA-2023-ES-2934196

PATIENT
  Age: 47 Year
  Sex: Female

DRUGS (16)
  1. CARBOPLATIN [Suspect]
     Active Substance: CARBOPLATIN
     Indication: Ovarian epithelial cancer
     Dosage: RECEIVED 6 CYCLES EVERY 21 DAYS
     Route: 065
     Dates: start: 201410, end: 201501
  2. CARBOPLATIN [Suspect]
     Active Substance: CARBOPLATIN
     Dosage: RECEIVED 6 CYCLES EVERY 21 DAYS
     Route: 065
     Dates: start: 201608, end: 201612
  3. CARBOPLATIN [Suspect]
     Active Substance: CARBOPLATIN
     Dosage: RECEIVED 5 CYCLES EVERY 21 DAYS
     Route: 065
     Dates: start: 201801, end: 20180426
  4. PACLITAXEL [Suspect]
     Active Substance: PACLITAXEL
     Indication: Ovarian epithelial cancer
     Dosage: RECEIVED 6 CYCLES, 175 MG/M 2 EVERY 21 DAYS
     Route: 065
     Dates: start: 201410, end: 201501
  5. PACLITAXEL [Suspect]
     Active Substance: PACLITAXEL
     Dosage: RECEIVED 6 CYCLES OF, 175 MG/M 2 EVERY 21 DAYS
     Route: 065
     Dates: start: 201608, end: 201612
  6. PACLITAXEL [Suspect]
     Active Substance: PACLITAXEL
     Dosage: RECEIVED 5 CYCLES, 175 MG/M 2 EVERY 21 DAYS
     Route: 065
     Dates: end: 20180426
  7. TRABECTEDIN [Suspect]
     Active Substance: TRABECTEDIN
     Indication: Ovarian epithelial cancer
     Dosage: 1.1MG/M 2 EVERY 21 DAYS
     Route: 065
     Dates: start: 201704
  8. TRABECTEDIN [Suspect]
     Active Substance: TRABECTEDIN
     Dosage: FROM THE SIXTH CYCLE, THE DOSE WAS DECREASED, 0.9 MG/M 2
     Route: 065
     Dates: start: 2017, end: 201710
  9. BEVACIZUMAB [Suspect]
     Active Substance: BEVACIZUMAB
     Indication: Ovarian epithelial cancer
     Dosage: RECEIVED 6 CYCLES 7.5 MG/KG EVERY 21 DAYS
     Route: 065
     Dates: start: 201410, end: 201501
  10. BEVACIZUMAB [Suspect]
     Active Substance: BEVACIZUMAB
     Dosage: THE MAINTENANCE THERAPY  7.5 MG/KG EVERY 21 DAYS
     Route: 065
     Dates: start: 201502, end: 201602
  11. BEVACIZUMAB [Suspect]
     Active Substance: BEVACIZUMAB
     Dosage: ON DAY 1; RECEIVED A TOTAL OF 26 CYCLES,  15 MG/M2 EVERY 21 DAYS
     Route: 065
     Dates: start: 201805, end: 201912
  12. OLAPARIB [Suspect]
     Active Substance: OLAPARIB
     Indication: Ovarian epithelial cancer
     Dosage: 800 MILLIGRAM DAILY; MAINTENANCE TREATMENT, 400 MG EVERY 12 HRS
     Route: 048
     Dates: start: 20161226
  13. DOXORUBICIN [Suspect]
     Active Substance: DOXORUBICIN
     Indication: Ovarian epithelial cancer
     Dosage: 30 MG/M 2 EVERY 21 DAYS
     Route: 065
     Dates: start: 201704
  14. DOXORUBICIN [Suspect]
     Active Substance: DOXORUBICIN
     Dosage: FROM THE SIXTH CYCLE, THE DOSE WAS DECREASED; RECEIVED A TOTAL OF 10 CYCLES, 25 MG/M2
     Route: 065
     Dates: start: 2017, end: 201710
  15. DOXORUBICIN [Suspect]
     Active Substance: DOXORUBICIN
     Dosage: RECEIVED 3 CYCLES, 48 MG/M2 EVERY 28 DAYS
     Route: 065
     Dates: start: 202001, end: 202003
  16. GEMCITABINE [Suspect]
     Active Substance: GEMCITABINE
     Indication: Ovarian epithelial cancer
     Dosage: ON DAY 1 AND 8, 1000 MG/M2 EVERY 21 DAYS
     Route: 065
     Dates: start: 201805, end: 201912

REACTIONS (9)
  - Neurotoxicity [Unknown]
  - Anaemia [Unknown]
  - Thrombocytopenia [Unknown]
  - Drug hypersensitivity [Unknown]
  - Decreased appetite [Unknown]
  - Drug ineffective [Unknown]
  - Asthenia [Unknown]
  - Nausea [Unknown]
  - Vomiting [Unknown]

NARRATIVE: CASE EVENT DATE: 20160101
